FAERS Safety Report 23045211 (Version 1)
Quarter: 2023Q4

REPORT INFORMATION
  Report Type: Spontaneous
  Country: GB (occurrence: GB)
  Receive Date: 20231009
  Receipt Date: 20231009
  Transmission Date: 20240109
  Serious: Yes (Hospitalization)
  Sender: FDA-Public Use
  Company Number: None

PATIENT
  Age: 74 Year
  Sex: Male

DRUGS (1)
  1. PIRFENIDONE [Suspect]
     Active Substance: PIRFENIDONE
     Indication: Product used for unknown indication
     Dosage: 267 MG, Q4H; FREQUENCY: 6 PER DAY;
     Route: 050
     Dates: start: 202212

REACTIONS (2)
  - Hospitalisation [Unknown]
  - Illness [Unknown]

NARRATIVE: CASE EVENT DATE: 20221201
